FAERS Safety Report 7047811-4 (Version None)
Quarter: 2010Q4

REPORT INFORMATION
  Report Type: 
  Country: None (occurrence: None)
  Receive Date: 20101015
  Receipt Date: 20101011
  Transmission Date: 20110411
  Serious: No
  Sender: FDA-Public Use
  Company Number: US-PFIZER INC-2010109437

PATIENT
  Age: 67 Year
  Sex: Female
  Weight: 123 kg

DRUGS (8)
  1. TIKOSYN [Suspect]
     Indication: ATRIAL FIBRILLATION
     Dosage: 500 UG, 2X/DAY
     Dates: start: 20100826
  2. CRESTOR [Concomitant]
     Dosage: UNK
  3. SINGULAIR [Concomitant]
     Dosage: UNK
  4. ZETIA [Concomitant]
     Dosage: UNK
  5. COUMADIN [Concomitant]
     Dosage: UNK
  6. LASIX [Concomitant]
     Dosage: UNK, AS NEEDED
  7. METOPROLOL [Concomitant]
     Dosage: UNK
  8. PANTOPRAZOLE [Concomitant]
     Dosage: UNK

REACTIONS (3)
  - BOWEL MOVEMENT IRREGULARITY [None]
  - EAR PAIN [None]
  - HEADACHE [None]
